FAERS Safety Report 8277088-3 (Version None)
Quarter: 2012Q2

REPORT INFORMATION
  Report Type: 
  Country: None (occurrence: None)
  Receive Date: 20120412
  Receipt Date: 20120411
  Transmission Date: 20120825
  Serious: Yes (Other)
  Sender: FDA-Public Use
  Company Number: PHEH2012US003929

PATIENT
  Sex: Female

DRUGS (9)
  1. DICYCLOMINE [Concomitant]
     Dosage: 20 MG, UNK
  2. ADDERALL 5 [Concomitant]
     Dosage: 20 MG, UNK
  3. ASPIRIN [Concomitant]
     Dosage: 81 MG, UNK
  4. GILENYA [Suspect]
     Indication: MULTIPLE SCLEROSIS
     Dosage: 0.5 MG, QD
     Route: 048
     Dates: start: 20110802
  5. AMANTADINE HCL [Concomitant]
     Dosage: 10 MG, UNK
  6. NAMENDA [Concomitant]
     Dosage: 10 MG, UNK
  7. METOPROLOL SUCCINATE [Concomitant]
  8. CYMBALTA [Concomitant]
     Dosage: 60 MG, UNK
  9. CLONIDINE HYDROCHLORIDE [Concomitant]
     Dosage: 0.1 MG, UNK

REACTIONS (4)
  - FALL [None]
  - RASH [None]
  - HYPOAESTHESIA [None]
  - LOSS OF CONSCIOUSNESS [None]
